FAERS Safety Report 7987499-9 (Version None)
Quarter: 2011Q4

REPORT INFORMATION
  Report Type: 
  Country: None (occurrence: None)
  Receive Date: 20111216
  Receipt Date: 20111207
  Transmission Date: 20120403
  Serious: Yes (Other)
  Sender: FDA-Public Use
  Company Number: PHHY2011IT107327

PATIENT
  Sex: Male

DRUGS (7)
  1. RAMIPRIL [Concomitant]
     Dosage: UNK
     Route: 048
  2. VOLTAREN [Suspect]
     Dosage: 100 MG
     Route: 048
     Dates: start: 20111026, end: 20111026
  3. ARAVA [Concomitant]
     Dosage: UNK
     Route: 048
  4. RANIDIL [Concomitant]
     Dosage: UNK
  5. FOLINA [Concomitant]
     Dosage: UNK
     Route: 048
  6. OMEPRAZOLE [Concomitant]
     Dosage: UNK
  7. PLAQUENIL [Concomitant]
     Dosage: UNK
     Route: 048

REACTIONS (2)
  - DERMATITIS ALLERGIC [None]
  - BLOOD PRESSURE FLUCTUATION [None]
